FAERS Safety Report 5148519-2 (Version None)
Quarter: 2006Q4

REPORT INFORMATION
  Report Type: 
  Country: None (occurrence: None)
  Receive Date: 20060918
  Receipt Date: 20060619
  Transmission Date: 20070319
  Serious: Yes (Other)
  Sender: FDA-Public Use
  Company Number: US-JNJFOC-20060500934

PATIENT
  Age: 30 Year
  Sex: Female
  Weight: 68.0396 kg

DRUGS (5)
  1. TOPAMAX [Suspect]
     Indication: MIGRAINE
     Dosage: 25 MG , 1 IN 1 DAY
     Dates: start: 20060322
  2. LEXAPRO () SSRI [Concomitant]
  3. ADVAUR () SERETIDE MITE [Concomitant]
  4. TEGRETOL [Concomitant]
  5. ALBUTEROL [Concomitant]

REACTIONS (1)
  - MYOPIA [None]
